FAERS Safety Report 9026637 (Version 2)
Quarter: 2013Q3

REPORT INFORMATION
  Report Type: Spontaneous
  Country: GB (occurrence: None)
  Receive Date: 20130107
  Receipt Date: 20130930
  Transmission Date: 20140515
  Serious: Yes (Hospitalization, Other)
  Sender: FDA-Public Use
  Company Number: GER/UKI/13/0027287

PATIENT
  Age: 58 Year
  Sex: Male

DRUGS (8)
  1. LAMOTRIGINE (LAMOTRIGINE) [Suspect]
     Indication: DEPRESSED MOOD
     Route: 048
  2. LAMOTRIGINE (LAMOTRIGINE) [Suspect]
     Route: 048
  3. ARIPIPRAZOLE (ARIPIPRAZOLE) [Suspect]
     Route: 048
  4. KWELLS [Suspect]
     Indication: SALIVARY HYPERSECRETION
     Dosage: 300 MCG, 1 IN 1 D
     Route: 060
  5. MIRTAZAPINE [Suspect]
     Indication: DEPRESSION
     Dosage: 45 MG, 1 IN 1 D
     Route: 048
  6. PROCYCLIDINE [Suspect]
     Indication: EXTRAPYRAMIDAL DISORDER
     Dosage: 10 MG, 1 IN 1D, ORAL
  7. VENLAFAXINE (VENLAFAXINE) [Suspect]
     Indication: DEPRESSION
     Dosage: 75 MG, 1 D, ORAL
     Route: 048
  8. ZAPONEX (CLOZAPINE) [Suspect]
     Indication: SCHIZOPHRENIA
     Dosage: 225 MG, 1 D, ORAL
     Route: 048
     Dates: start: 20120806, end: 20120823

REACTIONS (8)
  - Full blood count abnormal [None]
  - Anaemia [None]
  - Lymphocyte count decreased [None]
  - Mean cell haemoglobin decreased [None]
  - Mean cell volume decreased [None]
  - Haematocrit decreased [None]
  - Platelet count decreased [None]
  - Leukopenia [None]
